FAERS Safety Report 16760889 (Version 1)
Quarter: 2019Q3

REPORT INFORMATION
  Report Type: Report from Study
  Country: RU (occurrence: RU)
  Receive Date: 20190830
  Receipt Date: 20190830
  Transmission Date: 20191005
  Serious: Yes (Other)
  Sender: FDA-Public Use
  Company Number: RU-JNJFOC-20190200871

PATIENT

DRUGS (3)
  1. RIVAROXABAN [Concomitant]
     Active Substance: RIVAROXABAN
     Route: 065
  2. RIVAROXABAN [Concomitant]
     Active Substance: RIVAROXABAN
     Route: 065
  3. IBRUTINIB [Suspect]
     Active Substance: IBRUTINIB
     Indication: CHRONIC LYMPHOCYTIC LEUKAEMIA
     Route: 048

REACTIONS (8)
  - Gingival bleeding [Unknown]
  - Atrial fibrillation [Unknown]
  - Haemorrhage [Unknown]
  - Petechiae [Unknown]
  - Haematoma [Unknown]
  - Epistaxis [Unknown]
  - Hyphaema [Unknown]
  - Haematuria [Unknown]
